FAERS Safety Report 16037685 (Version 1)
Quarter: 2019Q1

REPORT INFORMATION
  Report Type: Spontaneous
  Country: US (occurrence: US)
  Receive Date: 20190305
  Receipt Date: 20190305
  Transmission Date: 20190418
  Serious: No
  Sender: FDA-Public Use
  Company Number: US-IMPAX LABORATORIES, LLC-2018-IPXL-04345

PATIENT
  Sex: Female
  Weight: 99 kg

DRUGS (2)
  1. RYTARY [Suspect]
     Active Substance: CARBIDOPA\LEVODOPA
     Indication: PARKINSON^S DISEASE
     Dosage: (23.75/95 MG) 2 DOSAGE FORM, 2 /DAY
     Route: 065
     Dates: start: 201701
  2. RYTARY [Suspect]
     Active Substance: CARBIDOPA\LEVODOPA
     Dosage: (36.25/145 MG) 1 DOSAGE FORM, 3 /DAY
     Route: 065
     Dates: start: 201701

REACTIONS (1)
  - Nausea [Unknown]
